FAERS Safety Report 4650297-8 (Version None)
Quarter: 2005Q2

REPORT INFORMATION
  Report Type: 
  Country: None (occurrence: None)
  Receive Date: 20050331
  Receipt Date: 20050112
  Transmission Date: 20051028
  Serious: No
  Sender: FDA-Public Use
  Company Number: 05P-163-0286264-00

PATIENT
  Age: 55 Year
  Sex: Female
  Weight: 54.4316 kg

DRUGS (5)
  1. HUMIRA [Suspect]
     Indication: RHEUMATOID ARTHRITIS
     Dosage: 40 MG, 1 IN 2 WK, INJECTION
     Dates: start: 20040801, end: 20041001
  2. TRAZEDONE [Concomitant]
  3. PARACETAMOL [Concomitant]
  4. BUCINDOLOL HYDROCHLORIDE [Concomitant]
  5. ROFECOXIB [Concomitant]

REACTIONS (1)
  - HERPES ZOSTER [None]
